FAERS Safety Report 12584791 (Version 2)
Quarter: 2016Q3

REPORT INFORMATION
  Report Type: Spontaneous
  Country: US (occurrence: US)
  Receive Date: 20160722
  Receipt Date: 20160826
  Transmission Date: 20161109
  Serious: No
  Sender: FDA-Public Use
  Company Number: US-B.I. PHARMACEUTICALS,INC./RIDGEFIELD-2016-BI-45059BP

PATIENT
  Age: 77 Year
  Sex: Male
  Weight: 72.57 kg

DRUGS (11)
  1. TRADJENTA [Suspect]
     Active Substance: LINAGLIPTIN
     Indication: TYPE 2 DIABETES MELLITUS
     Dosage: 5 MG
     Route: 048
     Dates: start: 2015
  2. GLIMIPERIDE [Concomitant]
     Active Substance: GLIMEPIRIDE
     Dosage: 2 MG
     Route: 048
  3. XANAX [Concomitant]
     Active Substance: ALPRAZOLAM
     Indication: NERVOUSNESS
  4. GLIMIPERIDE [Concomitant]
     Active Substance: GLIMEPIRIDE
     Dosage: 10 MG
     Route: 048
  5. METOPROLOL. [Concomitant]
     Active Substance: METOPROLOL
     Indication: HYPERTENSION
     Dosage: 50 MG
     Route: 048
  6. GLIMIPERIDE [Concomitant]
     Active Substance: GLIMEPIRIDE
     Indication: DIABETES MELLITUS
     Dosage: 8 MG
     Route: 048
  7. LOVASTATIN. [Concomitant]
     Active Substance: LOVASTATIN
     Indication: BLOOD CHOLESTEROL INCREASED
     Dosage: 20 MG
     Route: 048
  8. WARFARIN [Concomitant]
     Active Substance: WARFARIN
     Indication: ANTICOAGULANT THERAPY
     Dosage: 5 MG
     Route: 048
  9. WARFARIN [Concomitant]
     Active Substance: WARFARIN
     Dosage: 2.5 MG
     Route: 048
  10. XANAX [Concomitant]
     Active Substance: ALPRAZOLAM
     Indication: SLEEP DISORDER
     Dosage: 1 MG
     Route: 055
  11. GLIMIPERIDE [Concomitant]
     Active Substance: GLIMEPIRIDE
     Dosage: 2.1429 MG
     Route: 048

REACTIONS (2)
  - Exercise lack of [Not Recovered/Not Resolved]
  - Glycosylated haemoglobin increased [Not Recovered/Not Resolved]

NARRATIVE: CASE EVENT DATE: 201602
